FAERS Safety Report 14273958 (Version 1)
Quarter: 2017Q4

REPORT INFORMATION
  Report Type: Report from Study
  Country: US (occurrence: US)
  Receive Date: 20171212
  Receipt Date: 20171212
  Transmission Date: 20180321
  Serious: Yes (Other)
  Sender: FDA-Public Use
  Company Number: US-BAYER-2017-210879

PATIENT
  Age: 44 Year
  Sex: Female

DRUGS (2)
  1. STIVARGA [Suspect]
     Active Substance: REGORAFENIB
     Indication: COLORECTAL CANCER
     Dosage: DAILY DOSE 120 MG, FOR 3 WEEKS ON/ONE WEEK OFF
     Route: 048
     Dates: start: 20171129
  2. STIVARGA [Suspect]
     Active Substance: REGORAFENIB
     Indication: COLORECTAL CANCER
     Dosage: DAILY DOSE 120 MG, FOR 3 WEEKS ON/ONE WEEK OFF
     Route: 048
     Dates: start: 20171021, end: 20171111

REACTIONS (17)
  - Fatigue [Recovering/Resolving]
  - Weight decreased [None]
  - Erythema [None]
  - Decreased appetite [None]
  - Arthralgia [None]
  - Dry skin [None]
  - Skin erosion [None]
  - Pain in extremity [Not Recovered/Not Resolved]
  - Nephritis [None]
  - Faeces soft [None]
  - Sensory disturbance [None]
  - Muscle spasms [None]
  - Off label use [None]
  - Skin erosion [None]
  - Proctalgia [Recovering/Resolving]
  - Myalgia [None]
  - Decreased activity [None]

NARRATIVE: CASE EVENT DATE: 2017
